FAERS Safety Report 21796278 (Version 1)
Quarter: 2022Q4

REPORT INFORMATION
  Report Type: Spontaneous
  Country: CN (occurrence: None)
  Receive Date: 20221229
  Receipt Date: 20221229
  Transmission Date: 20230113
  Serious: Yes (Hospitalization, Other)
  Sender: FDA-Public Use
  Company Number: CN-Eisai Medical Research-EC-2022-130742

PATIENT
  Age: 25 Year
  Sex: Female
  Weight: 62 kg

DRUGS (4)
  1. RABEPRAZOLE [Suspect]
     Active Substance: RABEPRAZOLE
     Indication: Helicobacter infection
     Dosage: 2 TABS - UNKNOWN DOSAGE
     Route: 048
     Dates: start: 20221204, end: 20221211
  2. CLARITHROMYCIN [Suspect]
     Active Substance: CLARITHROMYCIN
     Indication: Helicobacter infection
     Dosage: 4 TABS - UNKNOWN DOSAGE
     Route: 048
     Dates: start: 20221204, end: 20221211
  3. ORNIDAZOLE [Suspect]
     Active Substance: ORNIDAZOLE
     Indication: Helicobacter infection
     Dosage: 4 CAPS - UNKNOWN DOSAGE
     Route: 048
     Dates: start: 20221204, end: 20221211
  4. BISMUTH SUBCITRATE [Suspect]
     Active Substance: BISMUTH SUBCITRATE
     Indication: Helicobacter infection
     Dosage: 4 CAPS - UNKNOWN DOSAGE
     Route: 048
     Dates: start: 20221204, end: 20221211

REACTIONS (2)
  - Pyrexia [Recovering/Resolving]
  - Drug eruption [Recovering/Resolving]

NARRATIVE: CASE EVENT DATE: 20221211
